FAERS Safety Report 6999899-4 (Version None)
Quarter: 2010Q3

REPORT INFORMATION
  Report Type: 
  Country: None (occurrence: None)
  Receive Date: 20100920
  Receipt Date: 20090910
  Transmission Date: 20110219
  Serious: Yes (Hospitalization)
  Sender: FDA-Public Use
  Company Number: US-ASTRAZENECA-2009SE12391

PATIENT
  Age: 16361 Day
  Sex: Male

DRUGS (4)
  1. SEROQUEL XR [Suspect]
     Indication: BIPOLAR DISORDER
     Route: 048
     Dates: start: 20090801
  2. WELLBUTRIN [Concomitant]
  3. VALIUM [Concomitant]
  4. EFFEXOR [Concomitant]

REACTIONS (1)
  - PRIAPISM [None]
